FAERS Safety Report 24184920 (Version 1)
Quarter: 2024Q3

REPORT INFORMATION
  Report Type: Spontaneous
  Country: US (occurrence: US)
  Receive Date: 20240807
  Receipt Date: 20240807
  Transmission Date: 20241017
  Serious: No
  Sender: LUPIN
  Company Number: US-LUPIN PHARMACEUTICALS INC.-2024-06818

PATIENT

DRUGS (1)
  1. BUPROPION HYDROCHLORIDE [Suspect]
     Active Substance: BUPROPION HYDROCHLORIDE
     Indication: Inflammatory bowel disease
     Dosage: UNK, 150 MG XL
     Route: 065

REACTIONS (3)
  - Product residue present [Unknown]
  - Product use in unapproved indication [Unknown]
  - No adverse event [Unknown]
